FAERS Safety Report 7380647-3 (Version None)
Quarter: 2011Q1

REPORT INFORMATION
  Report Type: 
  Country: None (occurrence: None)
  Receive Date: 20110325
  Receipt Date: 20110325
  Transmission Date: 20110831
  Serious: No
  Sender: FDA-Public Use
  Company Number: None

PATIENT
  Age: 73 Year
  Sex: Male
  Weight: 86.4556 kg

DRUGS (1)
  1. FLEBOGAMMA [Suspect]
     Indication: CHRONIC LYMPHOCYTIC LEUKAEMIA
     Dosage: 44 GRAM TITRATION IV DRIP
     Route: 041

REACTIONS (1)
  - BACK PAIN [None]
